FAERS Safety Report 5639962-3 (Version None)
Quarter: 2008Q1

REPORT INFORMATION
  Report Type: 
  Country: None (occurrence: None)
  Receive Date: 20080226
  Receipt Date: 20080226
  Transmission Date: 20080703
  Serious: Yes (Death)
  Sender: FDA-Public Use
  Company Number: None

PATIENT
  Sex: Male
  Weight: 52 kg

DRUGS (5)
  1. FENTANYL [Suspect]
     Indication: PAIN MANAGEMENT
     Dosage: 25 MCG 1X EVERY 3 DAYS TRANSDERMAL
     Route: 062
     Dates: start: 20080126, end: 20080127
  2. FENTANYL [Suspect]
     Dosage: 50 MCG TRANSDERMA; 8 DAYS PRIOR, IN HOSPITAL
     Route: 062
  3. RENAGEL [Concomitant]
  4. NEXIUM [Concomitant]
  5. RECORMON [Concomitant]

REACTIONS (1)
  - DEATH [None]
